FAERS Safety Report 15490747 (Version 1)
Quarter: 2018Q4

REPORT INFORMATION
  Report Type: Spontaneous
  Country: ES (occurrence: ES)
  Receive Date: 20181011
  Receipt Date: 20181011
  Transmission Date: 20190205
  Serious: Yes (Other)
  Sender: FDA-Public Use
  Company Number: ES-TEVA-2018-ES-963138

PATIENT
  Age: 8 Year
  Sex: Female

DRUGS (3)
  1. DOXORUBICINA (202A) [Suspect]
     Active Substance: DOXORUBICIN HYDROCHLORIDE
     Indication: ACUTE LYMPHOCYTIC LEUKAEMIA
     Dosage: 30MG/M2/DIA DIA 1 Y 8
     Route: 042
     Dates: start: 20171127, end: 20171203
  2. VINCRISTINA (809A) [Suspect]
     Active Substance: VINCRISTINE SULFATE
     Indication: ACUTE LYMPHOCYTIC LEUKAEMIA
     Dosage: 1,5 MG/M2/DIA DIA 1 Y 8
     Route: 042
     Dates: start: 20171127, end: 20171203
  3. DEXAMETASONA (722A) [Concomitant]
     Active Substance: DEXAMETHASONE
     Dosage: 10MG/M2/D
     Route: 042
     Dates: start: 20171127

REACTIONS (1)
  - Hepatitis [Recovered/Resolved]

NARRATIVE: CASE EVENT DATE: 20171204
